FAERS Safety Report 21298605 (Version 1)
Quarter: 2022Q3

REPORT INFORMATION
  Report Type: Spontaneous
  Country: US (occurrence: None)
  Receive Date: 20220904
  Receipt Date: 20220904
  Transmission Date: 20221027
  Serious: No
  Sender: FDA-Public Use
  Company Number: None

PATIENT
  Age: 56 Year
  Sex: Male
  Weight: 84.6 kg

DRUGS (2)
  1. TELMISARTAN [Suspect]
     Active Substance: TELMISARTAN
     Indication: Hypertension
     Dosage: FREQUENCY : DAILY;?
     Route: 048
     Dates: start: 20220617, end: 20220716
  2. MICARDIS [Concomitant]
     Active Substance: TELMISARTAN

REACTIONS (3)
  - Blood pressure increased [None]
  - Product measured potency issue [None]
  - Product substitution issue [None]

NARRATIVE: CASE EVENT DATE: 20220716
